FAERS Safety Report 5404770-5 (Version None)
Quarter: 2007Q3

REPORT INFORMATION
  Report Type: 
  Country: None (occurrence: None)
  Receive Date: 20070731
  Receipt Date: 20070727
  Transmission Date: 20080115
  Serious: Yes (Hospitalization)
  Sender: FDA-Public Use
  Company Number: A0666610A

PATIENT
  Sex: 0

DRUGS (1)
  1. NICODERM CQ [Suspect]
     Indication: DRUG WITHDRAWAL MAINTENANCE THERAPY
     Dosage: TRANSDERMAL
     Route: 062

REACTIONS (1)
  - CORONARY ANGIOPLASTY [None]
